FAERS Safety Report 5257039-6 (Version None)
Quarter: 2007Q1

REPORT INFORMATION
  Report Type: 
  Country: None (occurrence: None)
  Receive Date: 20070307
  Receipt Date: 20070223
  Transmission Date: 20070707
  Serious: Yes (Other)
  Sender: FDA-Public Use
  Company Number: PHBS2007BR03422

PATIENT
  Age: 24 Year
  Sex: Female

DRUGS (2)
  1. TEGRETOL [Suspect]
     Indication: NEUROCYSTICERCOSIS
     Dosage: 1000 TO 1200 MG/DAY
     Route: 048
  2. TEGRETOL [Suspect]
     Dosage: 200 MG, TID
     Route: 048

REACTIONS (6)
  - ABNORMAL BEHAVIOUR [None]
  - ANAEMIA [None]
  - DRUG EXPOSURE DURING PREGNANCY [None]
  - HEPATITIS [None]
  - URINARY TRACT INFECTION [None]
  - WEIGHT DECREASED [None]
